FAERS Safety Report 10385026 (Version 1)
Quarter: 2014Q1

REPORT INFORMATION
  Report Type: Spontaneous
  Country: US (occurrence: None)
  Receive Date: 20140306
  Receipt Date: 20140306
  Transmission Date: 20141002
  Serious: Yes (Other)
  Sender: FDA-Public Use
  Company Number: 163-21880-13034155

PATIENT
  Age: 51 Year
  Sex: Male
  Weight: 108.86 kg

DRUGS (12)
  1. REVLIMID (LENALIDOMIDE) (25 MILLIGRAM, CAPSULES) [Suspect]
     Indication: PLASMA CELL MYELOMA
     Route: 048
     Dates: start: 20090801, end: 20130207
  2. ASPIRINE (ACETYLSALICYLIC ACID) [Concomitant]
  3. DEXAMETHASONE [Concomitant]
  4. KYPROLIS (CARFILZOMIB) [Concomitant]
  5. MULTIVITAMINS [Concomitant]
  6. NEXIUM (ESOMEPRAZOLE) [Concomitant]
  7. TRIMTERENE-HCTZ (DYAZIDE) [Concomitant]
  8. XANAX (ALPRAZOLAM) [Concomitant]
  9. DIOVAN (VALSARTAN) [Concomitant]
  10. SINEQUAN (DOXEPIN HYDROCHLORIDE( [Concomitant]
  11. CLARITIN (LORATADINE) [Concomitant]
  12. PROVENTIL (SALBUTAMOL) [Concomitant]

REACTIONS (4)
  - Weight fluctuation [None]
  - Local swelling [None]
  - Fatigue [None]
  - Tremor [None]
